FAERS Safety Report 10224569 (Version 1)
Quarter: 2014Q1

REPORT INFORMATION
  Report Type: Spontaneous
  Country: US (occurrence: None)
  Receive Date: 20140306
  Receipt Date: 20140306
  Transmission Date: 20141002
  Serious: Yes (Other)
  Sender: FDA-Public Use
  Company Number: 163-21880-13112242

PATIENT
  Age: 73 Year
  Sex: Male
  Weight: 99.11 kg

DRUGS (14)
  1. REVLIMID [Suspect]
     Indication: PLASMA CELL MYELOMA
     Route: 048
     Dates: start: 20120925
  2. ASPIRIN (ACETYLSALICYLIC ACID) [Concomitant]
  3. ATENOLOL (ATENOLOL) [Concomitant]
  4. ETODOLAC (ETODOLAC) [Concomitant]
  5. GLUTAMINE (LEVOGLUTAMINE) [Concomitant]
  6. OMEPRAZOLE (OMEPRAZOLE) [Concomitant]
  7. SIMVASTATIN (SIMVASTATIN) [Concomitant]
  8. OXYCODONE (OXYCODONE) [Concomitant]
  9. CALCIUM CARBONATE (CALCIUM CARBONATE) [Concomitant]
  10. CYANOCOBALAMIN (CYANOCOBALAMIN) [Concomitant]
  11. PRAMIPEXOLE (PRAMIPEXOLE) [Concomitant]
  12. SILDENAFIL (SILDENAFIL) [Concomitant]
  13. ZOMETA (ZOLEDRONIC ACID) [Concomitant]
  14. XARELTO (RIVAROXABAN) [Concomitant]

REACTIONS (1)
  - Pulmonary embolism [None]
